FAERS Safety Report 9451518 (Version 2)
Quarter: 2013Q4

REPORT INFORMATION
  Report Type: Spontaneous
  Country: US (occurrence: US)
  Receive Date: 20130811
  Receipt Date: 20131016
  Transmission Date: 20140711
  Serious: Yes (Other)
  Sender: FDA-Public Use
  Company Number: US-ELI_LILLY_AND_COMPANY-US201308000102

PATIENT
  Sex: Female

DRUGS (2)
  1. CYMBALTA [Suspect]
     Indication: DEPRESSION
     Dosage: 60 MG, BID
     Route: 065
  2. CYMBALTA [Suspect]
     Indication: FIBROMYALGIA

REACTIONS (5)
  - Convulsion [Unknown]
  - Headache [Not Recovered/Not Resolved]
  - Diabetes mellitus [Unknown]
  - Drug hypersensitivity [Unknown]
  - Drug withdrawal syndrome [Not Recovered/Not Resolved]
